FAERS Safety Report 6404599-5 (Version None)
Quarter: 2009Q4

REPORT INFORMATION
  Report Type: 
  Country: None (occurrence: None)
  Receive Date: 20091016
  Receipt Date: 20091005
  Transmission Date: 20100525
  Serious: Yes (Other)
  Sender: FDA-Public Use
  Company Number: FI-B.I. PHARMACEUTICALS,INC./RIDGEFIELD-2009-DE-05991BY

PATIENT
  Sex: Male

DRUGS (1)
  1. KINZALMONO [Suspect]
     Indication: ESSENTIAL HYPERTENSION
     Route: 048

REACTIONS (1)
  - HYPERTENSION [None]
